FAERS Safety Report 10187544 (Version 1)
Quarter: 2014Q2

REPORT INFORMATION
  Report Type: Spontaneous
  Country: US (occurrence: US)
  Receive Date: 20140522
  Receipt Date: 20140522
  Transmission Date: 20141212
  Serious: No
  Sender: FDA-Public Use
  Company Number: US-SANOFI-AVENTIS-2013SA083292

PATIENT
  Age: 80 Year
  Sex: Female

DRUGS (3)
  1. LANTUS SOLOSTAR [Suspect]
     Indication: TYPE 2 DIABETES MELLITUS
     Dosage: TAKEN FROM : OVER YEAR DOSE:50 UNIT(S)
     Route: 051
  2. SOLOSTAR [Concomitant]
  3. INSULIN [Concomitant]
     Dosage: DOSE:10 UNIT(S)
     Route: 065

REACTIONS (1)
  - Visual impairment [Unknown]
